FAERS Safety Report 23766354 (Version 1)
Quarter: 2024Q2

REPORT INFORMATION
  Report Type: Spontaneous
  Country: DE (occurrence: DE)
  Receive Date: 20240422
  Receipt Date: 20240422
  Transmission Date: 20240716
  Serious: Yes (Hospitalization, Other)
  Sender: FDA-Public Use
  Company Number: None

PATIENT
  Age: 30 Year
  Sex: Female

DRUGS (3)
  1. CHORIOGONADOTROPIN ALFA [Suspect]
     Active Substance: CHORIOGONADOTROPIN ALFA
     Indication: Assisted reproductive technology
  2. TRIPTORELIN [Suspect]
     Active Substance: TRIPTORELIN
     Indication: Assisted reproductive technology
  3. FOLLITROPIN ALFA [Suspect]
     Active Substance: FOLLITROPIN ALFA
     Indication: Assisted reproductive technology

REACTIONS (2)
  - Pain [Unknown]
  - Ovarian hyperstimulation syndrome [Unknown]

NARRATIVE: CASE EVENT DATE: 20240405
